FAERS Safety Report 19255128 (Version 1)
Quarter: 2021Q2

REPORT INFORMATION
  Report Type: Spontaneous
  Country: GB (occurrence: GB)
  Receive Date: 20210513
  Receipt Date: 20210513
  Transmission Date: 20210717
  Serious: Yes (Other)
  Sender: FDA-Public Use
  Company Number: GB-EMD SERONO-9237856

PATIENT
  Age: 73 Year
  Sex: Male

DRUGS (3)
  1. AXITINIB [Suspect]
     Active Substance: AXITINIB
  2. AVELUMAB [Suspect]
     Active Substance: AVELUMAB
     Indication: CLEAR CELL RENAL CELL CARCINOMA
     Dates: start: 20191127
  3. AXITINIB [Suspect]
     Active Substance: AXITINIB
     Indication: CLEAR CELL RENAL CELL CARCINOMA
     Dates: start: 20191127

REACTIONS (1)
  - Liver function test abnormal [Recovering/Resolving]

NARRATIVE: CASE EVENT DATE: 202002
